FAERS Safety Report 14504718 (Version 1)
Quarter: 2018Q1

REPORT INFORMATION
  Report Type: Spontaneous
  Country: US (occurrence: US)
  Receive Date: 20180208
  Receipt Date: 20180208
  Transmission Date: 20180509
  Serious: No
  Sender: FDA-Public Use
  Company Number: US-JNJFOC-20180112281

PATIENT
  Age: 71 Year
  Sex: Female
  Weight: 40.82 kg

DRUGS (2)
  1. TYLENOL 8 HR ARTHRITIS PAIN [Suspect]
     Active Substance: ACETAMINOPHEN
     Indication: ARTHRITIS
     Dosage: TOTAL OF 4 TIMES; TAKING TWO IN THE MORNING AND TWO IN THE EVENING
     Route: 048
  2. TYLENOL 8 HR ARTHRITIS PAIN [Suspect]
     Active Substance: ACETAMINOPHEN
     Indication: HEADACHE
     Dosage: TOTAL OF 4 TIMES; TAKING TWO IN THE MORNING AND TWO IN THE EVENING
     Route: 048

REACTIONS (1)
  - Inappropriate schedule of drug administration [Unknown]
